FAERS Safety Report 7732545-0 (Version None)
Quarter: 2011Q3

REPORT INFORMATION
  Report Type: 
  Country: None (occurrence: None)
  Receive Date: 20110906
  Receipt Date: 20110825
  Transmission Date: 20111222
  Serious: Yes (Hospitalization, Other)
  Sender: FDA-Public Use
  Company Number: US-ASTRAZENECA-2010SE24201

PATIENT
  Age: 65 Year
  Sex: Male
  Weight: 76.2 kg

DRUGS (11)
  1. PLAVIX [Concomitant]
  2. AMBIEN [Concomitant]
     Indication: SLEEP DISORDER
  3. NEXIUM [Suspect]
     Route: 048
  4. FLUOXETINE HYDROCHLORIDE [Concomitant]
  5. SIMVASTATIN [Concomitant]
  6. ASPIRIN [Concomitant]
  7. LORATADINE [Concomitant]
     Indication: SINUS DISORDER
  8. LORATADINE [Concomitant]
     Indication: MULTIPLE ALLERGIES
  9. TOPROL-XL [Suspect]
     Route: 048
  10. METOPROLOL TARTRATE [Suspect]
     Route: 048
  11. PRILOSEC OTC [Suspect]
     Indication: DYSPEPSIA
     Dosage: 20 MG 1 TO 2 TABLETS DAILY
     Route: 048
     Dates: start: 20081201

REACTIONS (41)
  - RHINITIS SEASONAL [None]
  - MUSCLE SPASMS [None]
  - JOINT STIFFNESS [None]
  - ARTHRALGIA [None]
  - RASH [None]
  - DRUG DOSE OMISSION [None]
  - TOBACCO ABUSE [None]
  - CHEST PAIN [None]
  - INTERMITTENT CLAUDICATION [None]
  - THROAT CANCER [None]
  - PROSTATIC DISORDER [None]
  - ESSENTIAL HYPERTENSION [None]
  - DERMAL CYST [None]
  - HYPONATRAEMIA [None]
  - COUGH [None]
  - DYSPHAGIA [None]
  - PRURITUS [None]
  - DIZZINESS [None]
  - FATIGUE [None]
  - BACK PAIN [None]
  - DEPRESSION [None]
  - CAROTID ARTERY STENOSIS [None]
  - ARTERIOSCLEROSIS CORONARY ARTERY [None]
  - PERIPHERAL ARTERIAL OCCLUSIVE DISEASE [None]
  - GASTROOESOPHAGEAL REFLUX DISEASE [None]
  - TOOTH EXTRACTION [None]
  - SEBORRHOEIC KERATOSIS [None]
  - WEIGHT DECREASED [None]
  - CONTUSION [None]
  - ORGANIC ERECTILE DYSFUNCTION [None]
  - HIATUS HERNIA [None]
  - MELANOCYTIC NAEVUS [None]
  - PSORIASIS [None]
  - ANXIETY DISORDER [None]
  - PHARYNGITIS [None]
  - FALL [None]
  - CERUMEN IMPACTION [None]
  - DYSPEPSIA [None]
  - PANIC ATTACK [None]
  - PARAESTHESIA [None]
  - DRUG INEFFECTIVE [None]
